FAERS Safety Report 11458768 (Version 1)
Quarter: 2015Q3

REPORT INFORMATION
  Report Type: Spontaneous
  Country: US (occurrence: None)
  Receive Date: 20150903
  Receipt Date: 20150903
  Transmission Date: 20151125
  Serious: No
  Sender: FDA-Public Use
  Company Number: None

PATIENT
  Age: 29 Year
  Sex: Male
  Weight: 77.11 kg

DRUGS (1)
  1. DEXTROAMPHETAMINE SULFATE. [Suspect]
     Active Substance: DEXTROAMPHETAMINE SULFATE
     Indication: FATIGUE
     Dosage: 2 TAB Q4 ORAL
     Route: 048
     Dates: start: 20150902

REACTIONS (1)
  - Headache [None]

NARRATIVE: CASE EVENT DATE: 20150902
